FAERS Safety Report 7901280-8 (Version None)
Quarter: 2011Q4

REPORT INFORMATION
  Report Type: 
  Country: None (occurrence: None)
  Receive Date: 20111108
  Receipt Date: 20111102
  Transmission Date: 20120403
  Serious: Yes (Death, Hospitalization)
  Sender: FDA-Public Use
  Company Number: PHHY2011JP94272

PATIENT
  Sex: Male

DRUGS (1)
  1. EXJADE [Suspect]
     Indication: CERULOPLASMIN ABNORMAL
     Dosage: 250 MG, DAILY
     Route: 048
     Dates: start: 20110303, end: 20110801

REACTIONS (1)
  - PNEUMONIA ASPIRATION [None]
